FAERS Safety Report 21366122 (Version 1)
Quarter: 2022Q3

REPORT INFORMATION
  Report Type: Report from Study
  Country: US (occurrence: US)
  Receive Date: 20220922
  Receipt Date: 20220922
  Transmission Date: 20221027
  Serious: Yes (Other)
  Sender: FDA-Public Use
  Company Number: US-TAKEDA-2022TJP073841

PATIENT

DRUGS (2)
  1. BRENTUXIMAB VEDOTIN [Suspect]
     Active Substance: BRENTUXIMAB VEDOTIN
     Indication: Hodgkin^s disease recurrent
     Dosage: UNK
     Route: 065
  2. BRENTUXIMAB VEDOTIN [Suspect]
     Active Substance: BRENTUXIMAB VEDOTIN
     Indication: Hodgkin^s disease refractory

REACTIONS (7)
  - Hodgkin^s disease recurrent [Unknown]
  - Hodgkin^s disease refractory [Unknown]
  - Disease progression [Unknown]
  - Neuropathy peripheral [Unknown]
  - Neutropenia [Unknown]
  - Infection [Unknown]
  - Toxicity to various agents [Unknown]
